FAERS Safety Report 13717476 (Version 1)
Quarter: 2017Q3

REPORT INFORMATION
  Report Type: Spontaneous
  Country: None (occurrence: US)
  Receive Date: 20170703
  Receipt Date: 20170703
  Transmission Date: 20171127
  Serious: No
  Sender: FDA-Public Use
  Company Number: None

PATIENT
  Age: 56 Year
  Sex: Female

DRUGS (1)
  1. BOTOX [Suspect]
     Active Substance: ONABOTULINUMTOXINA
     Indication: MIGRAINE WITH AURA
     Dosage: 265 UNITS EVERY 90 DAYS INTRAMUSCULARLY
     Route: 030
     Dates: start: 20170324

REACTIONS (5)
  - Muscular weakness [None]
  - Loss of personal independence in daily activities [None]
  - Gait disturbance [None]
  - Vision blurred [None]
  - Musculoskeletal stiffness [None]

NARRATIVE: CASE EVENT DATE: 20170325
